FAERS Safety Report 9532183 (Version 2)
Quarter: 2013Q4

REPORT INFORMATION
  Report Type: Spontaneous
  Country: BR (occurrence: BR)
  Receive Date: 20130918
  Receipt Date: 20131119
  Transmission Date: 20140711
  Serious: No
  Sender: FDA-Public Use
  Company Number: BR-BAYER-2013-112829

PATIENT
  Age: 42 Year
  Sex: Male
  Weight: 78 kg

DRUGS (1)
  1. GADOVIST [Suspect]
     Indication: CARDIAC IMAGING PROCEDURE
     Dosage: 16 ML, ONCE
     Route: 042
     Dates: start: 20130917, end: 20130917

REACTIONS (3)
  - Contrast media allergy [Recovered/Resolved]
  - Nasal obstruction [Recovered/Resolved]
  - Rash papular [Recovered/Resolved]
